FAERS Safety Report 12456036 (Version 1)
Quarter: 2016Q2

REPORT INFORMATION
  Report Type: Spontaneous
  Country: US (occurrence: US)
  Receive Date: 20160610
  Receipt Date: 20160610
  Transmission Date: 20160815
  Serious: Yes (Hospitalization, Other)
  Sender: FDA-Public Use
  Company Number: US-PFIZER INC-2015387866

PATIENT
  Age: 54 Year
  Sex: Male

DRUGS (3)
  1. AXIRON [Suspect]
     Active Substance: TESTOSTERONE
     Indication: HORMONE REPLACEMENT THERAPY
     Dosage: 30 MG, (GEL UNDER ARMS)
     Route: 061
     Dates: start: 201209, end: 201411
  2. ANDRODERM [Suspect]
     Active Substance: TESTOSTERONE
     Indication: HORMONE REPLACEMENT THERAPY
     Dosage: 30 MG, (PATCH)
     Dates: start: 201201, end: 201203
  3. TESTOSTERONE CIPIONATE [Suspect]
     Active Substance: TESTOSTERONE
     Indication: HORMONE REPLACEMENT THERAPY
     Dosage: UNK, INJECTIONS
     Dates: start: 201503, end: 201511

REACTIONS (2)
  - Syncope [Unknown]
  - Cardiac arrest [Unknown]

NARRATIVE: CASE EVENT DATE: 201505
